FAERS Safety Report 5855074-8 (Version None)
Quarter: 2008Q3

REPORT INFORMATION
  Report Type: 
  Country: None (occurrence: None)
  Receive Date: 20080822
  Receipt Date: 20080623
  Transmission Date: 20090109
  Serious: No
  Sender: FDA-Public Use
  Company Number: US-ABBOTT-08P-163-0459499-00

PATIENT
  Sex: Female
  Weight: 47.67 kg

DRUGS (4)
  1. SYNTHROID [Suspect]
     Indication: THYROID DISORDER
     Dosage: 0.50-0.75 MILLIGRAMS
     Route: 048
     Dates: start: 20060101
  2. MULTI-VITAMIN [Concomitant]
     Indication: VITAMIN SUPPLEMENTATION
     Route: 048
  3. CALCIUM [Concomitant]
     Indication: VITAMIN SUPPLEMENTATION
     Route: 048
  4. LIPOFLAVANOID [Concomitant]
     Indication: EAR DISORDER
     Route: 048

REACTIONS (1)
  - ALOPECIA [None]
